FAERS Safety Report 19461303 (Version 1)
Quarter: 2021Q2

REPORT INFORMATION
  Report Type: Spontaneous
  Country: CN (occurrence: CN)
  Receive Date: 20210625
  Receipt Date: 20210625
  Transmission Date: 20210717
  Serious: Yes (Hospitalization, Other)
  Sender: FDA-Public Use
  Company Number: CN-PFIZER INC-2021727413

PATIENT
  Age: 39 Year
  Sex: Male

DRUGS (11)
  1. VINCRISTINE [Concomitant]
     Active Substance: VINCRISTINE
     Dosage: 2 MG
     Dates: start: 20210525, end: 20210525
  2. RITUXIMAB. [Concomitant]
     Active Substance: RITUXIMAB
     Indication: NEOPLASM
     Dosage: 0.8 G
     Dates: start: 20210517, end: 20210517
  3. SINTILIMAB. [Concomitant]
     Active Substance: SINTILIMAB
     Indication: NEOPLASM
     Dosage: 200 MG
     Dates: start: 20210519, end: 20210519
  4. METHOTREXATE. [Suspect]
     Active Substance: METHOTREXATE
     Indication: NEOPLASM
     Dosage: UNK
     Route: 041
     Dates: start: 20210518, end: 20210524
  5. ENDOXAN [Concomitant]
     Active Substance: CYCLOPHOSPHAMIDE
     Dosage: 0.4 G, 1X/DAY
     Route: 041
     Dates: start: 20210519, end: 20210519
  6. VINCRISTINE [Concomitant]
     Active Substance: VINCRISTINE
     Indication: NEOPLASM
     Dosage: 2 MG
     Dates: start: 20210518, end: 20210518
  7. METHOTREXATE. [Suspect]
     Active Substance: METHOTREXATE
     Dosage: 7 G, 1X/DAY
     Route: 041
     Dates: start: 20210523, end: 20210523
  8. METHOTREXATE. [Suspect]
     Active Substance: METHOTREXATE
     Dosage: 2 G, 1X/DAY
     Route: 041
     Dates: start: 20210523, end: 20210523
  9. ENDOXAN [Concomitant]
     Active Substance: CYCLOPHOSPHAMIDE
     Indication: NEOPLASM
     Dosage: 1.2 G, 1X/DAY
     Route: 041
     Dates: start: 20210518, end: 20210518
  10. DOXORUBICIN HCL LIPOSOME [Concomitant]
     Active Substance: DOXORUBICIN HYDROCHLORIDE
     Indication: NEOPLASM
     Dosage: 60 MG
     Dates: start: 20210518, end: 20210518
  11. PREDNISONE. [Concomitant]
     Active Substance: PREDNISONE
     Indication: NEOPLASM
     Dosage: 60 MG, 2X/DAY
     Dates: start: 20210519, end: 20210522

REACTIONS (1)
  - Myelosuppression [Unknown]

NARRATIVE: CASE EVENT DATE: 20210531
